FAERS Safety Report 5244343-0 (Version None)
Quarter: 2007Q1

REPORT INFORMATION
  Report Type: 
  Country: None (occurrence: None)
  Receive Date: 20070222
  Receipt Date: 20070126
  Transmission Date: 20070707
  Serious: Yes (Hospitalization, Other)
  Sender: FDA-Public Use
  Company Number: US-PFIZER INC-2006018721

PATIENT
  Sex: Male
  Weight: 49.9 kg

DRUGS (1)
  1. BEXTRA [Suspect]
     Indication: HERPES ZOSTER
     Dates: start: 20041004, end: 20041031

REACTIONS (1)
  - CEREBROVASCULAR ACCIDENT [None]
